FAERS Safety Report 7293366-9 (Version None)
Quarter: 2011Q1

REPORT INFORMATION
  Report Type: 
  Country: None (occurrence: None)
  Receive Date: 20110215
  Receipt Date: 20110211
  Transmission Date: 20110831
  Serious: Yes (Hospitalization, Other)
  Sender: FDA-Public Use
  Company Number: NO-PFIZER INC-2010165616

PATIENT
  Sex: Female

DRUGS (8)
  1. ALBYL-E [Concomitant]
     Indication: ANTICOAGULANT THERAPY
     Dosage: 75 MG, 1X/DAY
     Dates: start: 20070101
  2. LIPITOR [Suspect]
     Indication: BLOOD CHOLESTEROL INCREASED
     Dosage: 80 MG, UNK
     Dates: start: 20081013, end: 20101201
  3. LOSEC MUPS [Concomitant]
     Indication: REFLUX OESOPHAGITIS
     Dosage: 20 MG, 2X/DAY
     Dates: start: 20070101, end: 20110101
  4. VENTOLIN [Concomitant]
     Indication: ASTHMA
     Dosage: 0.1 MG, AS AGREED WITH THE PHYSICIAN
     Dates: start: 20070101
  5. ATACAND [Concomitant]
     Indication: HYPERTENSION
     Dosage: 8 MG, 1X/DAY
     Dates: start: 20090121, end: 20110101
  6. LEVOTHYROXINE SODIUM [Concomitant]
     Indication: HYPOTHYROIDISM
     Dosage: 100 UG, 1 TABLET DAILY EXCEPT 1.5 TABLET MONDAY AND THURSDAY
     Dates: start: 20070101
  7. ARTHROTEC [Concomitant]
     Indication: ANKYLOSING SPONDYLITIS
     Dosage: 1 TABLET 2-3 TIMES DAILY
     Dates: start: 20070101
  8. SERETIDE [Concomitant]
     Indication: ASTHMA
     Dosage: 25UG SALMETEROL /125UG FLUTICASONE MORNING AND EVENING
     Dates: start: 20070101

REACTIONS (7)
  - RASH [None]
  - BACK PAIN [None]
  - MALAISE [None]
  - PAIN [None]
  - HYPERSENSITIVITY [None]
  - ARTHRALGIA [None]
  - DRUG INTERACTION [None]
